FAERS Safety Report 18667006 (Version 1)
Quarter: 2020Q4

REPORT INFORMATION
  Report Type: Spontaneous
  Country: US (occurrence: US)
  Receive Date: 20201228
  Receipt Date: 20201228
  Transmission Date: 20210114
  Serious: No
  Sender: FDA-Public Use
  Company Number: US-LUPIN PHARMACEUTICALS INC.-2020-02794

PATIENT
  Age: 64 Year
  Sex: Male

DRUGS (5)
  1. BACLOFEN. [Concomitant]
     Active Substance: BACLOFEN
     Indication: NEURALGIA
     Dosage: UNK
     Route: 065
  2. DANTROLENE. [Concomitant]
     Active Substance: DANTROLENE SODIUM
     Indication: NEURALGIA
     Dosage: UNK
     Route: 065
  3. MORPHINE [Suspect]
     Active Substance: MORPHINE
     Indication: NEURALGIA
     Dosage: EQUIVALENT OF 45 MG
     Route: 065
  4. GABAPENTIN. [Concomitant]
     Active Substance: GABAPENTIN
     Indication: NEURALGIA
     Dosage: UNK
     Route: 065
  5. OXYCODONE [Suspect]
     Active Substance: OXYCODONE
     Indication: NEURALGIA
     Dosage: UNK
     Route: 065

REACTIONS (3)
  - Constipation [Unknown]
  - Memory impairment [Unknown]
  - Somnolence [Unknown]
